FAERS Safety Report 17428711 (Version 1)
Quarter: 2020Q1

REPORT INFORMATION
  Report Type: Other
  Country: CA (occurrence: CA)
  Receive Date: 20200217
  Receipt Date: 20200217
  Transmission Date: 20200409
  Serious: Yes (Death, Hospitalization, Other)
  Sender: FDA-Public Use
  Company Number: CA-ASSERTIO THERAPEUTICS, INC.-CA-2020DEP000097

PATIENT
  Age: 62 Year
  Sex: Female

DRUGS (9)
  1. INSULIN [Concomitant]
     Active Substance: INSULIN NOS
     Indication: PRODUCT USED FOR UNKNOWN INDICATION
     Dosage: UNK
  2. ROSUVASTATIN CALCIUM. [Concomitant]
     Active Substance: ROSUVASTATIN CALCIUM
     Indication: PRODUCT USED FOR UNKNOWN INDICATION
     Dosage: UNK
  3. RAMIPRIL. [Concomitant]
     Active Substance: RAMIPRIL
     Indication: PRODUCT USED FOR UNKNOWN INDICATION
     Dosage: UNK
  4. ACTEMRA [Suspect]
     Active Substance: TOCILIZUMAB
     Indication: RHEUMATOID ARTHRITIS
     Dosage: 800 MG, UNK
     Route: 042
  5. DICLOFENAC POTASSIUM. [Suspect]
     Active Substance: DICLOFENAC POTASSIUM
     Indication: PRODUCT USED FOR UNKNOWN INDICATION
     Dosage: UNK
     Route: 065
  6. ACTEMRA [Suspect]
     Active Substance: TOCILIZUMAB
     Dosage: UNK
     Route: 042
  7. HYDROMORPHONE [Concomitant]
     Active Substance: HYDROMORPHONE
     Indication: PRODUCT USED FOR UNKNOWN INDICATION
     Dosage: UNK
  8. METHOTREXATE. [Suspect]
     Active Substance: METHOTREXATE
     Indication: PRODUCT USED FOR UNKNOWN INDICATION
     Dosage: 10 MG, WEEKLY
     Route: 065
  9. INSULIN LISPRO PROTAMINE RECOMBINANT [Concomitant]
     Active Substance: INSULIN LISPRO
     Indication: PRODUCT USED FOR UNKNOWN INDICATION
     Dosage: UNK

REACTIONS (29)
  - Arthralgia [Fatal]
  - Death [Fatal]
  - Gait disturbance [Fatal]
  - Nasopharyngitis [Fatal]
  - Peripheral swelling [Fatal]
  - Pharyngitis [Fatal]
  - Ear infection [Fatal]
  - Hepatic enzyme increased [Fatal]
  - Bronchitis [Fatal]
  - Liver disorder [Fatal]
  - Musculoskeletal stiffness [Fatal]
  - Poor venous access [Fatal]
  - Therapeutic response decreased [Fatal]
  - Joint swelling [Fatal]
  - Loss of personal independence in daily activities [Fatal]
  - Oedema peripheral [Fatal]
  - Swelling [Fatal]
  - Tremor [Fatal]
  - Liver injury [Fatal]
  - Dementia [Fatal]
  - Drug ineffective [Fatal]
  - Noninfective encephalitis [Fatal]
  - Pain in extremity [Fatal]
  - Vomiting [Fatal]
  - Hepatic steatosis [Fatal]
  - Pruritus [Fatal]
  - Seizure [Fatal]
  - Therapeutic product effect decreased [Fatal]
  - Rheumatoid arthritis [Fatal]
